FAERS Safety Report 8840703 (Version 2)
Quarter: 2015Q3

REPORT INFORMATION
  Report Type: Report from Study
  Country: US (occurrence: US)
  Receive Date: 20121015
  Receipt Date: 20150709
  Transmission Date: 20151125
  Serious: Yes (Other)
  Sender: FDA-Public Use
  Company Number: US-ROCHE-1125374

PATIENT
  Sex: Male
  Weight: 53.4 kg

DRUGS (12)
  1. PREDNISONE. [Concomitant]
     Active Substance: PREDNISONE
     Dosage: 50 OR 60 MG
     Route: 065
  2. FK-506 [Concomitant]
     Active Substance: TACROLIMUS
     Route: 048
  3. FK-506 [Concomitant]
     Active Substance: TACROLIMUS
     Dosage: 4 CAPSULES
     Route: 048
  4. DAPSONE. [Concomitant]
     Active Substance: DAPSONE
     Dosage: 1 TABLET
     Route: 065
  5. PREDNISONE. [Concomitant]
     Active Substance: PREDNISONE
     Route: 065
  6. HUMATROPE [Concomitant]
     Active Substance: SOMATROPIN
     Dosage: 7 DAYS PER WEEK
     Route: 058
     Dates: start: 19930205
  7. NUTROPIN [Suspect]
     Active Substance: SOMATROPIN
     Indication: NEPHROTIC SYNDROME
     Route: 058
     Dates: start: 19940610
  8. PREDNISONE. [Concomitant]
     Active Substance: PREDNISONE
     Route: 065
  9. PREDNISONE. [Concomitant]
     Active Substance: PREDNISONE
     Route: 065
  10. TESTOSTERONE. [Concomitant]
     Active Substance: TESTOSTERONE
     Route: 065
     Dates: start: 19940920
  11. NUTROPIN [Suspect]
     Active Substance: SOMATROPIN
     Indication: BODY HEIGHT BELOW NORMAL
  12. FK-506 [Concomitant]
     Active Substance: TACROLIMUS
     Dosage: 4 TABLETS
     Route: 048

REACTIONS (3)
  - Proteinuria [Unknown]
  - Gynaecomastia [Unknown]
  - Rash maculo-papular [Unknown]
